FAERS Safety Report 6216263-6 (Version None)
Quarter: 2009Q2

REPORT INFORMATION
  Report Type: 
  Country: None (occurrence: None)
  Receive Date: 20090605
  Receipt Date: 20090602
  Transmission Date: 20091009
  Serious: Yes (Hospitalization)
  Sender: FDA-Public Use
  Company Number: B0572779A

PATIENT
  Age: 49 Year
  Sex: Male

DRUGS (3)
  1. PAROXETINE HCL [Suspect]
     Indication: DEPRESSION
     Dates: start: 20070401
  2. CLONAZEPAM [Concomitant]
  3. TOPIRAMATE [Concomitant]
     Dosage: 200MG PER DAY

REACTIONS (3)
  - EPILEPSY [None]
  - GRAND MAL CONVULSION [None]
  - MYOCLONUS [None]
